FAERS Safety Report 8895946 (Version 4)
Quarter: 2013Q1

REPORT INFORMATION
  Report Type: Report from Study
  Country: US (occurrence: US)
  Receive Date: 20121108
  Receipt Date: 20130225
  Transmission Date: 20140127
  Serious: Yes (Other)
  Sender: FDA-Public Use
  Company Number: US-JNJFOC-20121102154

PATIENT
  Age: 69 None
  Sex: Female
  Weight: 61.24 kg

DRUGS (19)
  1. TOPAMAX [Suspect]
     Indication: COMPLEX PARTIAL SEIZURES
     Route: 048
     Dates: start: 20121023
  2. TOPAMAX [Suspect]
     Indication: COMPLEX PARTIAL SEIZURES
     Route: 048
     Dates: start: 20120731
  3. TOPAMAX [Suspect]
     Indication: COMPLEX PARTIAL SEIZURES
     Dosage: 4 1/2 EVERY DAY
     Route: 048
     Dates: start: 20120731
  4. TOPAMAX [Suspect]
     Indication: COMPLEX PARTIAL SEIZURES
     Dosage: 4 1/2 EVERY DAY
     Route: 048
     Dates: start: 20121019, end: 20121022
  5. TOPAMAX [Suspect]
     Indication: COMPLEX PARTIAL SEIZURES
     Route: 048
     Dates: start: 2012
  6. TOPAMAX [Suspect]
     Indication: COMPLEX PARTIAL SEIZURES
     Route: 048
     Dates: start: 2012
  7. PRAVASTATIN [Concomitant]
     Indication: BLOOD CHOLESTEROL INCREASED
     Route: 065
  8. SYNTHROID [Concomitant]
     Indication: HYPOTHYROIDISM
     Route: 065
  9. OMEPRAZOLE [Concomitant]
     Indication: IRRITABLE BOWEL SYNDROME
     Route: 065
  10. CLONAZEPAM [Concomitant]
     Indication: ANXIETY
     Route: 065
  11. SERTRALINE [Concomitant]
     Indication: DEPRESSION
     Route: 065
  12. TRANXENE [Concomitant]
     Indication: ANXIETY
     Route: 065
  13. COLACE [Concomitant]
     Indication: LAXATIVE SUPPORTIVE CARE
     Route: 065
  14. PERDIEM [Concomitant]
     Indication: LAXATIVE SUPPORTIVE CARE
     Route: 065
  15. UNKNOWN MEDICATION [Concomitant]
     Route: 065
  16. RED YEAST RICE EXTRACT [Concomitant]
     Route: 065
  17. FOLIC ACID [Concomitant]
     Route: 065
  18. VIT-D3 [Concomitant]
     Route: 065
  19. ASPIRIN [Concomitant]
     Route: 065

REACTIONS (4)
  - Convulsion [Recovered/Resolved]
  - Feeling abnormal [Recovered/Resolved]
  - Product quality issue [Unknown]
  - Thinking abnormal [Unknown]
